FAERS Safety Report 9315412 (Version 2)
Quarter: 2013Q2

REPORT INFORMATION
  Report Type: Report from Study
  Country: RU (occurrence: RU)
  Receive Date: 20130529
  Receipt Date: 20130604
  Transmission Date: 20140414
  Serious: Yes (Death)
  Sender: FDA-Public Use
  Company Number: RU-ABBOTT-13P-251-1095631-00

PATIENT
  Age: 71 Year
  Sex: Male

DRUGS (2)
  1. LUCRIN DEPOT (LEUPRORELIN) [Suspect]
     Indication: PROSTATE CANCER
     Dates: start: 20110302, end: 20110905
  2. LUCRIN DEPOT (LEUPRORELIN) [Suspect]
     Dates: start: 20111103, end: 20121211

REACTIONS (1)
  - Disease progression [Fatal]
